FAERS Safety Report 24861282 (Version 1)
Quarter: 2025Q1

REPORT INFORMATION
  Report Type: Spontaneous
  Country: US (occurrence: US)
  Receive Date: 20250120
  Receipt Date: 20250120
  Transmission Date: 20250409
  Serious: No
  Sender: Kenvue
  Company Number: US-KENVUE-20241207572

PATIENT
  Sex: Female

DRUGS (8)
  1. IMODIUM [Suspect]
     Active Substance: LOPERAMIDE HYDROCHLORIDE
     Indication: Diarrhoea
     Route: 065
     Dates: start: 2024
  2. OFEV [Concomitant]
     Active Substance: NINTEDANIB
     Indication: Pulmonary fibrosis
     Dosage: 100 MILLIGRAM, TWICE A DAY
     Route: 048
     Dates: start: 202312
  3. OFEV [Concomitant]
     Active Substance: NINTEDANIB
     Indication: Idiopathic pulmonary fibrosis
  4. TYVASO [Concomitant]
     Active Substance: TREPROSTINIL
     Indication: Pulmonary arterial hypertension
     Dates: start: 202405
  5. TYVASO [Concomitant]
     Active Substance: TREPROSTINIL
     Dates: start: 202405
  6. TYVASO [Concomitant]
     Active Substance: TREPROSTINIL
     Dates: start: 202405
  7. Ginger ale [Concomitant]
     Indication: Nausea
     Route: 065
  8. PEPPERMINT [Concomitant]
     Active Substance: PEPPERMINT
     Indication: Nausea
     Route: 065

REACTIONS (2)
  - Constipation [Unknown]
  - Diarrhoea [Not Recovered/Not Resolved]

NARRATIVE: CASE EVENT DATE: 20240101
